FAERS Safety Report 5297376-2 (Version None)
Quarter: 2007Q2

REPORT INFORMATION
  Report Type: 
  Country: None (occurrence: None)
  Receive Date: 20070410
  Receipt Date: 20070410
  Transmission Date: 20071010
  Serious: No
  Sender: FDA-Public Use
  Company Number: None

PATIENT

DRUGS (2)
  1. NULEV ( HYOSCYAMINE SULFATE) [Suspect]
     Dosage: TABLET, ORALLY DISINTEGRATING
  2. NUBAIN [Suspect]
     Dosage: INJECTABLE

REACTIONS (3)
  - CONFUSIONAL STATE [None]
  - MEDICATION ERROR [None]
  - WRONG DRUG ADMINISTERED [None]
